FAERS Safety Report 9295470 (Version 1)
Quarter: 2013Q2

REPORT INFORMATION
  Report Type: Spontaneous
  Country: CH (occurrence: CH)
  Receive Date: 20130517
  Receipt Date: 20130517
  Transmission Date: 20140414
  Serious: Yes (Other)
  Sender: FDA-Public Use
  Company Number: CH-MERCK-1305CHE009096

PATIENT
  Age: 34 Year
  Sex: Female

DRUGS (4)
  1. AERIUS [Suspect]
     Dosage: UNK
     Dates: start: 201203, end: 201205
  2. MABTHERA [Suspect]
     Indication: SJOGREN^S SYNDROME
     Dosage: UNK
     Dates: end: 20120402
  3. ELYFEM 20 [Suspect]
     Indication: CONTRACEPTION
     Dosage: UNK
     Dates: start: 201203, end: 20120602
  4. PREDNISONE [Suspect]
     Indication: SJOGREN^S SYNDROME
     Dosage: 10 MG, QD
     Dates: start: 2012

REACTIONS (2)
  - Exposure during pregnancy [Recovered/Resolved]
  - Pregnancy [None]
